FAERS Safety Report 5096846-X (Version None)
Quarter: 2006Q3

REPORT INFORMATION
  Report Type: 
  Country: None (occurrence: None)
  Receive Date: 20060901
  Receipt Date: 20060901
  Transmission Date: 20061208
  Serious: Yes (Other)
  Sender: FDA-Public Use
  Company Number: None

PATIENT
  Age: 66 Year
  Sex: Female
  Weight: 49.8957 kg

DRUGS (1)
  1. ZETIA [Suspect]
     Indication: HYPERCHOLESTEROLAEMIA
     Dates: start: 20060823

REACTIONS (4)
  - ASTHENIA [None]
  - DIZZINESS [None]
  - LYMPHADENOPATHY [None]
  - SWOLLEN TONGUE [None]
